FAERS Safety Report 22702974 (Version 5)
Quarter: 2023Q4

REPORT INFORMATION
  Report Type: Spontaneous
  Country: US (occurrence: US)
  Receive Date: 20230713
  Receipt Date: 20231018
  Transmission Date: 20240110
  Serious: Yes (Other)
  Sender: FDA-Public Use
  Company Number: US-PPDUS-2023ST001721

PATIENT
  Age: 49 Year
  Sex: Female

DRUGS (3)
  1. ORSERDU [Suspect]
     Active Substance: ELACESTRANT
     Indication: Neoplasm malignant
     Route: 048
     Dates: start: 20230508
  2. ORSERDU [Suspect]
     Active Substance: ELACESTRANT
     Dosage: 345 MG ^TWO DAYS ON AND ONE DAY OFF^
     Route: 048
  3. ORSERDU [Suspect]
     Active Substance: ELACESTRANT
     Route: 048
     Dates: start: 202305

REACTIONS (16)
  - Renal impairment [Unknown]
  - Neutropenia [Not Recovered/Not Resolved]
  - Tumour marker increased [Not Recovered/Not Resolved]
  - Therapeutic response unexpected [Unknown]
  - Early satiety [Unknown]
  - Cystitis [Recovered/Resolved]
  - Back pain [Unknown]
  - White blood cell count decreased [Unknown]
  - Intentional product misuse [Unknown]
  - Insomnia [Not Recovered/Not Resolved]
  - Nausea [Unknown]
  - Decreased appetite [Unknown]
  - Abdominal distension [Not Recovered/Not Resolved]
  - Dyspepsia [Not Recovered/Not Resolved]
  - Fatigue [Not Recovered/Not Resolved]
  - Product dose omission issue [Unknown]

NARRATIVE: CASE EVENT DATE: 20230101
